FAERS Safety Report 9614275 (Version 1)
Quarter: 2013Q4

REPORT INFORMATION
  Report Type: Spontaneous
  Country: NL (occurrence: NL)
  Receive Date: 20131011
  Receipt Date: 20131011
  Transmission Date: 20140711
  Serious: Yes (Other)
  Sender: FDA-Public Use
  Company Number: NL-AMGEN-NLDSP2013070848

PATIENT
  Age: 67 Year
  Sex: Male

DRUGS (1)
  1. NEUPOGEN [Suspect]
     Indication: STEM CELL TRANSPLANT
     Dosage: 0.5 ML, 1 TIMES PER 1 DAYS
     Route: 065
     Dates: start: 201305, end: 201305

REACTIONS (1)
  - Liver disorder [Not Recovered/Not Resolved]
